FAERS Safety Report 7882635-7 (Version None)
Quarter: 2011Q4

REPORT INFORMATION
  Report Type: 
  Country: None (occurrence: None)
  Receive Date: 20111101
  Receipt Date: 20110617
  Transmission Date: 20120403
  Serious: No
  Sender: FDA-Public Use
  Company Number: US-AMGEN-USASP2011024873

PATIENT
  Age: 31 Year
  Sex: Female
  Weight: 75.737 kg

DRUGS (9)
  1. CALCIUM CITRATE [Concomitant]
     Dosage: 750 MG, BID
     Route: 048
  2. VITAMIN D [Concomitant]
     Dosage: UNK
     Route: 048
  3. ASPIRIN [Concomitant]
     Dosage: 81 MG, QD
     Route: 048
     Dates: start: 20110119
  4. PRENATAL VITAMINS                  /01549301/ [Concomitant]
     Dosage: UNK
     Route: 048
     Dates: start: 20100801
  5. PREDNISONE [Concomitant]
     Dosage: 5 MG, QD
     Route: 048
     Dates: start: 20101001, end: 20110201
  6. PREDNISONE [Concomitant]
     Dosage: 2.5 MG, QD
     Route: 048
     Dates: start: 20110201, end: 20110301
  7. FOLIC ACID [Concomitant]
     Dosage: 400 MG, QD
     Route: 048
     Dates: start: 20101001
  8. COLACE [Concomitant]
     Dosage: 100 MG, BID
     Route: 048
  9. ENBREL [Suspect]
     Indication: COGAN'S SYNDROME
     Dosage: 50 MG, QWK
     Route: 058
     Dates: start: 20091101

REACTIONS (2)
  - PREGNANCY [None]
  - IRON DEFICIENCY [None]
